FAERS Safety Report 8163765-1 (Version None)
Quarter: 2012Q1

REPORT INFORMATION
  Report Type: 
  Country: None (occurrence: None)
  Receive Date: 20120224
  Receipt Date: 20120217
  Transmission Date: 20120608
  Serious: Yes (Other)
  Sender: FDA-Public Use
  Company Number: PHHY2012IR014831

PATIENT
  Sex: Female

DRUGS (3)
  1. LETROZOLE [Suspect]
     Dosage: 5 MG
  2. CHORIONIC GONADOTROPIN [Concomitant]
     Dosage: 10000 IU, UNK
  3. PROGESTERONE [Concomitant]

REACTIONS (1)
  - OVARIAN HYPERSTIMULATION SYNDROME [None]
